FAERS Safety Report 10307993 (Version 2)
Quarter: 2014Q4

REPORT INFORMATION
  Report Type: Spontaneous
  Country: IT (occurrence: IT)
  Receive Date: 20140716
  Receipt Date: 20141017
  Transmission Date: 20150528
  Serious: Yes (Hospitalization)
  Sender: FDA-Public Use
  Company Number: IT-SA-2014SA092859

PATIENT
  Age: 74 Year
  Sex: Female

DRUGS (10)
  1. TRIATEC [Suspect]
     Active Substance: RAMIPRIL
     Indication: PRODUCT USED FOR UNKNOWN INDICATION
     Route: 048
     Dates: start: 20140301, end: 20140509
  2. XERISTAR [Concomitant]
     Active Substance: DULOXETINE HYDROCHLORIDE
     Dosage: 60MG
  3. LANSOPRAZOLE. [Concomitant]
     Active Substance: LANSOPRAZOLE
  4. MONOCINQUE [Concomitant]
     Active Substance: ISOSORBIDE MONONITRATE
     Dosage: 40MG
  5. HUMALOG [Concomitant]
     Active Substance: INSULIN LISPRO
     Dosage: 100U/ML
  6. LUVION [Suspect]
     Active Substance: CANRENONE
     Indication: PRODUCT USED FOR UNKNOWN INDICATION
     Dosage: 1 DF= 50 MG
     Route: 048
     Dates: start: 20131201, end: 20140509
  7. SEROQUEL [Concomitant]
     Active Substance: QUETIAPINE FUMARATE
     Dosage: 25MG
  8. PARACETAMOL [Concomitant]
     Active Substance: ACETAMINOPHEN
     Dosage: PARACETAMOL 500 MG TABLETS
  9. LASIX [Suspect]
     Active Substance: FUROSEMIDE
     Indication: PRODUCT USED FOR UNKNOWN INDICATION
     Route: 048
     Dates: start: 20140501, end: 20140509
  10. ALLOPURINOL. [Concomitant]
     Active Substance: ALLOPURINOL

REACTIONS (2)
  - Hyponatraemia [Recovered/Resolved]
  - Confusional state [Recovered/Resolved]

NARRATIVE: CASE EVENT DATE: 20140509
